FAERS Safety Report 20357395 (Version 1)
Quarter: 2022Q1

REPORT INFORMATION
  Report Type: Spontaneous
  Country: US (occurrence: US)
  Receive Date: 20220120
  Receipt Date: 20220120
  Transmission Date: 20220424
  Serious: No
  Sender: FDA-Public Use
  Company Number: US-PFIZER INC-202101448833

PATIENT
  Age: 57 Year
  Sex: Female
  Weight: 58.957 kg

DRUGS (1)
  1. IBRANCE [Suspect]
     Active Substance: PALBOCICLIB
     Indication: Breast cancer
     Dosage: 100 MG, CYCLIC (100 MG, DAILY (1 DAILY FOR 21 DAYS)
     Route: 048
     Dates: start: 20211001

REACTIONS (5)
  - Pyrexia [Recovered/Resolved]
  - Chills [Unknown]
  - Dysphonia [Unknown]
  - Lip swelling [Unknown]
  - Erythema [Recovered/Resolved]
